FAERS Safety Report 5156702-5 (Version None)
Quarter: 2006Q4

REPORT INFORMATION
  Report Type: 
  Country: None (occurrence: None)
  Receive Date: 20061115
  Receipt Date: 20061030
  Transmission Date: 20070319
  Serious: Yes (Death, Hospitalization, Other)
  Sender: FDA-Public Use
  Company Number: 2005000465

PATIENT
  Age: 53 Year
  Sex: Male

DRUGS (5)
  1. ERLOTINIB (TABLET) (ERLOTINIB HC1) [Suspect]
     Indication: NON-SMALL CELL LUNG CANCER
     Dosage: 150 MG (QD), ORAL
     Route: 048
     Dates: start: 20040909, end: 20050302
  2. WARFARIN SODIUM [Concomitant]
  3. THIAMIN (THIAMINE HYDROCHLORIDE) [Concomitant]
  4. VITAMIN B (VITAMIN B) [Concomitant]
  5. LANSOPRAZOLE [Concomitant]

REACTIONS (12)
  - BALANCE DISORDER [None]
  - CEREBRAL CALCIFICATION [None]
  - CONFUSIONAL STATE [None]
  - DISORIENTATION [None]
  - DYSARTHRIA [None]
  - ENCEPHALOPATHY [None]
  - FALL [None]
  - LUNG CANCER METASTATIC [None]
  - MALIGNANT NEOPLASM PROGRESSION [None]
  - METASTASES TO BONE [None]
  - SOMNOLENCE [None]
  - THINKING ABNORMAL [None]
